FAERS Safety Report 14313538 (Version 1)
Quarter: 2017Q4

REPORT INFORMATION
  Report Type: Other
  Country: US (occurrence: JP)
  Receive Date: 20171221
  Receipt Date: 20171221
  Transmission Date: 20180321
  Serious: Yes (Other)
  Sender: FDA-Public Use
  Company Number: JP-MARY KAY INC.-2037562

PATIENT
  Age: 27 Year
  Sex: Female

DRUGS (3)
  1. CLEAR PROOF BLEMISH CONTROL TONER ACNE MEDICATION [Suspect]
     Active Substance: SALICYLIC ACID
     Route: 061
     Dates: start: 20171121, end: 20171121
  2. CLEAR PROOF CLARIFYING CLEANSING GEL ACNE MEDICATION [Suspect]
     Active Substance: SALICYLIC ACID
     Route: 061
     Dates: start: 20171121, end: 20171121
  3. CLEAR PROOF ACNE TREATMENT ACNE MEDICATION [Suspect]
     Active Substance: BENZOYL PEROXIDE
     Indication: ACNE
     Route: 061
     Dates: start: 20171121, end: 20171121

REACTIONS (1)
  - Hypersensitivity [Recovered/Resolved]

NARRATIVE: CASE EVENT DATE: 20171122
